FAERS Safety Report 5300500-6 (Version None)
Quarter: 2007Q2

REPORT INFORMATION
  Report Type: 
  Country: None (occurrence: None)
  Receive Date: 20070413
  Receipt Date: 20070413
  Transmission Date: 20071010
  Serious: Yes (Hospitalization)
  Sender: FDA-Public Use
  Company Number: None

PATIENT
  Age: 77 Year
  Sex: Male
  Weight: 90.4 kg

DRUGS (1)
  1. AZTREONAM [Suspect]
     Indication: PNEUMONIA
     Dosage: 2GM Q8H IV DRIP
     Route: 041
     Dates: start: 20070401, end: 20070406

REACTIONS (2)
  - NEUTROPENIA [None]
  - WHITE BLOOD CELL COUNT DECREASED [None]
